FAERS Safety Report 21593754 (Version 1)
Quarter: 2022Q4

REPORT INFORMATION
  Report Type: Spontaneous
  Country: US (occurrence: None)
  Receive Date: 20221114
  Receipt Date: 20221114
  Transmission Date: 20230112
  Serious: Yes (Death)
  Sender: FDA-Public Use
  Company Number: None

PATIENT
  Age: 59 Year
  Sex: Male
  Weight: 106.59 kg

DRUGS (26)
  1. TEMOZOLOMIDE [Suspect]
     Active Substance: TEMOZOLOMIDE
     Indication: Brain neoplasm malignant
     Dosage: FREQUENCY : DAILY;?
     Route: 048
     Dates: start: 202210, end: 20221102
  2. UNSPECIFIED INGREDIENT [Concomitant]
     Active Substance: UNSPECIFIED INGREDIENT
  3. ALPRAZOLAM [Concomitant]
     Active Substance: ALPRAZOLAM
  4. AMLODIPINE [Concomitant]
     Active Substance: AMLODIPINE BESYLATE
  5. ATORVASTATIN [Concomitant]
     Active Substance: ATORVASTATIN
  6. BACTRIM [Concomitant]
     Active Substance: SULFAMETHOXAZOLE\TRIMETHOPRIM
  7. FLONASE [Concomitant]
     Active Substance: FLUTICASONE PROPIONATE
  8. DEXAMETHASONE [Concomitant]
     Active Substance: DEXAMETHASONE
  9. INFLUENZA VIRUS VACCINE [Concomitant]
     Active Substance: INFLUENZA VIRUS VACCINE
  10. GABAPENTIN [Concomitant]
     Active Substance: GABAPENTIN
  11. HUMALOG [Concomitant]
     Active Substance: INSULIN LISPRO
  12. HYDROXYZINE [Concomitant]
     Active Substance: HYDROXYZINE HYDROCHLORIDE
  13. LANTUS [Concomitant]
     Active Substance: INSULIN GLARGINE
  14. LEVETIRACETAM [Concomitant]
     Active Substance: LEVETIRACETAM
  15. LISINOPRIL [Concomitant]
     Active Substance: LISINOPRIL
  16. METOPROLOL TARTRATE [Concomitant]
     Active Substance: METOPROLOL TARTRATE
  17. MIRTAZAPINE [Concomitant]
     Active Substance: MIRTAZAPINE
  18. MUCINEX [Concomitant]
     Active Substance: GUAIFENESIN
  19. NOVOLOG [Concomitant]
     Active Substance: INSULIN ASPART
  20. ONDANSETRON [Concomitant]
     Active Substance: ONDANSETRON
  21. PNEUMOVZX 23 [Concomitant]
  22. ROPINIROLE [Concomitant]
     Active Substance: ROPINIROLE
  23. SOLIQUA 100/33 [Concomitant]
     Active Substance: INSULIN GLARGINE\LIXISENATIDE
  24. TRAMADOL [Concomitant]
     Active Substance: TRAMADOL
  25. TRILEPTAL [Concomitant]
     Active Substance: OXCARBAZEPINE
  26. VENLAFAXINE [Concomitant]
     Active Substance: VENLAFAXINE HYDROCHLORIDE

REACTIONS (1)
  - Death [None]

NARRATIVE: CASE EVENT DATE: 20221102
